FAERS Safety Report 8044575-2 (Version None)
Quarter: 2012Q1

REPORT INFORMATION
  Report Type: 
  Country: None (occurrence: None)
  Receive Date: 20120113
  Receipt Date: 20120113
  Transmission Date: 20120608
  Serious: Yes (Life-Threatening, Hospitalization, Other)
  Sender: FDA-Public Use
  Company Number: None

PATIENT
  Age: 31 Year
  Sex: Male
  Weight: 97.522 kg

DRUGS (5)
  1. EXCEDRIN (MIGRAINE) [Suspect]
     Indication: BACK PAIN
     Dosage: 2 TABLETS EVERY 6 HRS
     Route: 048
     Dates: start: 20111106, end: 20111109
  2. EXCEDRIN (MIGRAINE) [Suspect]
     Indication: OROPHARYNGEAL PAIN
     Dosage: 2 TABLETS EVERY 6 HRS
     Route: 048
     Dates: start: 20111106, end: 20111109
  3. EXCEDRIN (MIGRAINE) [Suspect]
     Indication: ARTHRALGIA
     Dosage: 2 TABLETS EVERY 6 HRS
     Route: 048
     Dates: start: 20111106, end: 20111109
  4. EXCEDRIN (MIGRAINE) [Suspect]
     Indication: DISCOMFORT
     Dosage: 2 TABLETS EVERY 6 HRS
     Route: 048
     Dates: start: 20111106, end: 20111109
  5. EXCEDRIN (MIGRAINE) [Concomitant]
     Indication: HEADACHE
     Dosage: 2 TABLETS
     Route: 048

REACTIONS (15)
  - BACK PAIN [None]
  - RENAL DISORDER [None]
  - URINARY TRACT INFECTION [None]
  - RED BLOOD CELL COUNT INCREASED [None]
  - HEPATIC FAILURE [None]
  - HEPATOMEGALY [None]
  - WHITE BLOOD CELL COUNT INCREASED [None]
  - PROTEIN TOTAL INCREASED [None]
  - MALAISE [None]
  - SPLENOMEGALY [None]
  - GASTROINTESTINAL DISORDER [None]
  - BLOOD URIC ACID INCREASED [None]
  - PHARYNGITIS STREPTOCOCCAL [None]
  - RENAL HYPERTROPHY [None]
  - CONDITION AGGRAVATED [None]
